FAERS Safety Report 21683319 (Version 1)
Quarter: 2022Q4

REPORT INFORMATION
  Report Type: Report from Study
  Country: DE (occurrence: DE)
  Receive Date: 20221205
  Receipt Date: 20221205
  Transmission Date: 20230113
  Serious: Yes (Hospitalization, Other)
  Sender: FDA-Public Use
  Company Number: DE-SA-SAC20220831000831

PATIENT
  Age: 58 Year
  Sex: Male

DRUGS (15)
  1. DEXAMETHASONE [Suspect]
     Active Substance: DEXAMETHASONE
     Indication: Plasma cell myeloma refractory
     Dosage: 20 MG
     Route: 065
     Dates: start: 20220602, end: 20220629
  2. DEXAMETHASONE [Suspect]
     Active Substance: DEXAMETHASONE
     Dosage: 20 MG, QW
     Route: 065
     Dates: start: 20220630, end: 20220715
  3. ISATUXIMAB [Suspect]
     Active Substance: ISATUXIMAB
     Indication: Plasma cell myeloma refractory
     Dosage: 1300 MG, QW
     Route: 065
     Dates: start: 20220602, end: 20220629
  4. ISATUXIMAB [Suspect]
     Active Substance: ISATUXIMAB
     Dosage: 1300 MG, 1X
     Route: 065
     Dates: start: 20220715, end: 20220715
  5. ISATUXIMAB [Suspect]
     Active Substance: ISATUXIMAB
     Dosage: 1300 MG, QW
     Dates: start: 20220630, end: 20220715
  6. CARFILZOMIB [Suspect]
     Active Substance: CARFILZOMIB
     Indication: Plasma cell myeloma refractory
     Dosage: 48 MG
     Route: 065
     Dates: start: 20220602, end: 20220616
  7. CARFILZOMIB [Suspect]
     Active Substance: CARFILZOMIB
     Dosage: 123 MG, QW
     Route: 065
     Dates: start: 20220617, end: 20220629
  8. CARFILZOMIB [Suspect]
     Active Substance: CARFILZOMIB
     Dosage: 120 MG, QW
     Route: 065
     Dates: start: 20220630, end: 20220715
  9. ACYCLOVIR [Concomitant]
     Active Substance: ACYCLOVIR
     Indication: Prophylaxis
     Dosage: UNK
     Dates: start: 20220602
  10. ONDANSETRON [Concomitant]
     Active Substance: ONDANSETRON
     Indication: Product used for unknown indication
     Dosage: UNK, QCY
     Dates: start: 20220602
  11. BORTEZOMIB [Concomitant]
     Active Substance: BORTEZOMIB
     Indication: Prophylaxis
     Dosage: UNK
     Dates: start: 20220913
  12. ACETAMINOPHEN [Concomitant]
     Active Substance: ACETAMINOPHEN
     Indication: Product used for unknown indication
     Dosage: UNK, QCY
     Dates: start: 20220602
  13. SULFAMETHOXAZOLE\TRIMETHOPRIM [Concomitant]
     Active Substance: SULFAMETHOXAZOLE\TRIMETHOPRIM
     Indication: Prophylaxis
     Dosage: UNK
     Dates: start: 20220602
  14. AMLODIPINE [Concomitant]
     Active Substance: AMLODIPINE BESYLATE
     Indication: Hypertonia
     Dosage: UNK
     Dates: start: 2022
  15. CANDESARTAN [Concomitant]
     Active Substance: CANDESARTAN
     Indication: Hypertonia
     Dosage: UNK
     Dates: start: 2022

REACTIONS (4)
  - Hypertensive crisis [Recovered/Resolved]
  - Acute kidney injury [Recovered/Resolved]
  - Infusion related reaction [Recovered/Resolved]
  - Hypersensitivity [Recovered/Resolved]

NARRATIVE: CASE EVENT DATE: 20220602
